FAERS Safety Report 7123756-6 (Version None)
Quarter: 2010Q4

REPORT INFORMATION
  Report Type: 
  Country: None (occurrence: None)
  Receive Date: 20101125
  Receipt Date: 20101112
  Transmission Date: 20110411
  Serious: Yes (Hospitalization)
  Sender: FDA-Public Use
  Company Number: PHHY2010ZA73053

PATIENT
  Age: 33 Year
  Sex: Female

DRUGS (3)
  1. EXFORGE [Suspect]
     Indication: HYPERTENSION
     Dosage: UNK
     Dates: start: 20090401, end: 20101014
  2. RIDAQ [Concomitant]
     Dosage: 12.5 MG, UNK
     Dates: start: 20090401
  3. CRESTOR [Concomitant]
     Dosage: 10 MG, UNK
     Dates: start: 20100301

REACTIONS (3)
  - ABORTION SPONTANEOUS [None]
  - DRUG EXPOSURE DURING PREGNANCY [None]
  - UTERINE DILATION AND CURETTAGE [None]
